FAERS Safety Report 6568535-3 (Version None)
Quarter: 2010Q1

REPORT INFORMATION
  Report Type: 
  Country: None (occurrence: None)
  Receive Date: 20100127
  Receipt Date: 20100119
  Transmission Date: 20100710
  Serious: Yes (Death)
  Sender: FDA-Public Use
  Company Number: PERL20100004

PATIENT
  Age: 40 Year
  Sex: Male

DRUGS (9)
  1. PERCOLONE (OXYCODONE) [Suspect]
     Indication: DRUG USE FOR UNKNOWN INDICATION
  2. HEROIN (DIAMORPHINE) [Suspect]
     Indication: DRUG USE FOR UNKNOWN INDICATION
  3. MORPHINE [Suspect]
     Indication: DRUG USE FOR UNKNOWN INDICATION
  4. CODEINE SUL TAB [Suspect]
     Indication: DRUG USE FOR UNKNOWN INDICATION
  5. DIAZEPAM [Suspect]
     Indication: DRUG USE FOR UNKNOWN INDICATION
  6. DESMETHYLDIAZEPAM (NORDAZEPAM) [Suspect]
     Indication: DRUG USE FOR UNKNOWN INDICATION
  7. TEMAZEPAM [Suspect]
     Indication: DRUG USE FOR UNKNOWN INDICATION
  8. CITALOPRAM HYDROBROMIDE [Suspect]
     Indication: DRUG USE FOR UNKNOWN INDICATION
  9. AMITRIPTYLINE HYDROCHLORIDE [Suspect]
     Indication: DRUG USE FOR UNKNOWN INDICATION

REACTIONS (4)
  - MALAISE [None]
  - NARCOTIC INTOXICATION [None]
  - OVERDOSE [None]
  - UNRESPONSIVE TO STIMULI [None]
